FAERS Safety Report 14948018 (Version 1)
Quarter: 2018Q2

REPORT INFORMATION
  Report Type: Spontaneous
  Country: US (occurrence: US)
  Receive Date: 20180508
  Receipt Date: 20180508
  Transmission Date: 20180711
  Serious: Yes (Hospitalization)
  Sender: FDA-Public Use
  Company Number: None

PATIENT
  Age: 39 Year
  Sex: Female
  Weight: 108 kg

DRUGS (2)
  1. GAMMAGARD [Suspect]
     Active Substance: HUMAN IMMUNOGLOBULIN G
     Indication: POSTOPERATIVE CARE
     Dosage: ?          OTHER FREQUENCY:2 DAYS MONTHLY;?
     Route: 042
     Dates: start: 20180423, end: 20180424
  2. GAMMAGARD [Suspect]
     Active Substance: HUMAN IMMUNOGLOBULIN G
     Indication: RENAL TRANSPLANT
     Dosage: ?          OTHER FREQUENCY:2 DAYS MONTHLY;?
     Route: 042
     Dates: start: 20180423, end: 20180424

REACTIONS (5)
  - Abdominal pain upper [None]
  - Pyrexia [None]
  - Headache [None]
  - Chills [None]
  - Hyperhidrosis [None]

NARRATIVE: CASE EVENT DATE: 20180426
